FAERS Safety Report 11317888 (Version 3)
Quarter: 2015Q4

REPORT INFORMATION
  Report Type: Spontaneous
  Country: US (occurrence: US)
  Receive Date: 20150728
  Receipt Date: 20151009
  Transmission Date: 20160304
  Serious: Yes (Other)
  Sender: FDA-Public Use
  Company Number: US-JNJFOC-20150709550

PATIENT
  Age: 74 Year
  Sex: Female
  Weight: 65.32 kg

DRUGS (3)
  1. STELARA [Suspect]
     Active Substance: USTEKINUMAB
     Indication: PSORIASIS
     Route: 058
     Dates: start: 2011
  2. FLONASE [Concomitant]
     Active Substance: FLUTICASONE PROPIONATE
     Route: 065
  3. IBUPROFEN. [Concomitant]
     Active Substance: IBUPROFEN
     Route: 065

REACTIONS (10)
  - Fatigue [Recovered/Resolved]
  - Amnesia [Unknown]
  - Blindness transient [Recovered/Resolved]
  - Dysarthria [Recovered/Resolved]
  - Underdose [Unknown]
  - Accidental exposure to product [Unknown]
  - Surgery [Unknown]
  - Axillary mass [Not Recovered/Not Resolved]
  - Head discomfort [Recovered/Resolved]
  - Typical aura without headache [Unknown]

NARRATIVE: CASE EVENT DATE: 201412
